FAERS Safety Report 8306071 (Version 3)
Quarter: 2012Q4

REPORT INFORMATION
  Report Type: 
  Country: US (occurrence: US)
  Receive Date: 20111221
  Receipt Date: 20120830
  Transmission Date: 20130627
  Serious: Yes (Other)
  Sender: FDA-Public Use
  Company Number: US-ELI_LILLY_AND_COMPANY-US201112004299

PATIENT
  Age: 59 Year
  Sex: Female
  Weight: 100.68 kg

DRUGS (2)
  1. HUMATROPE [Suspect]
     Indication: GROWTH HORMONE DEFICIENCY
     Dosage: UNK UNK, qd
     Route: 058
     Dates: end: 20111118
  2. CHEMOTHERAPEUTICS [Concomitant]
     Indication: BREAST CANCER
     Dosage: UNK

REACTIONS (3)
  - Breast cancer [Unknown]
  - Syncope [Not Recovered/Not Resolved]
  - Nasopharyngitis [Unknown]
